FAERS Safety Report 8079047-2 (Version None)
Quarter: 2012Q1

REPORT INFORMATION
  Report Type: 
  Country: None (occurrence: None)
  Receive Date: 20120128
  Receipt Date: 20110705
  Transmission Date: 20120608
  Serious: Yes (Other)
  Sender: FDA-Public Use
  Company Number: US-ABBOTT-11P-163-0836741-00

PATIENT
  Sex: Female
  Weight: 73.548 kg

DRUGS (4)
  1. NASONEX [Concomitant]
     Indication: HYPERSENSITIVITY
  2. MOBIC [Concomitant]
     Indication: PAIN
  3. PAXIL [Concomitant]
     Indication: DEPRESSION
  4. HUMIRA [Suspect]
     Indication: CROHN'S DISEASE
     Dates: start: 20081001, end: 20110501

REACTIONS (2)
  - BASAL CELL CARCINOMA [None]
  - RASH MACULO-PAPULAR [None]
